FAERS Safety Report 19956985 (Version 1)
Quarter: 2021Q4

REPORT INFORMATION
  Report Type: Spontaneous
  Country: GB (occurrence: GB)
  Receive Date: 20211014
  Receipt Date: 20211014
  Transmission Date: 20220303
  Serious: Yes (Other)
  Sender: FDA-Public Use
  Company Number: GB-BAXTER-2021BAX032303

PATIENT

DRUGS (1)
  1. ONDANSETRON [Suspect]
     Active Substance: ONDANSETRON
     Indication: Hyperemesis gravidarum
     Dosage: 4MG
     Route: 064
     Dates: start: 20200906, end: 20200927

REACTIONS (1)
  - Cleft lip and palate [Unknown]
